FAERS Safety Report 20152936 (Version 2)
Quarter: 2021Q4

REPORT INFORMATION
  Report Type: Spontaneous
  Country: US (occurrence: US)
  Receive Date: 20211206
  Receipt Date: 20211215
  Transmission Date: 20220303
  Serious: Yes (Other)
  Sender: FDA-Public Use
  Company Number: US-ALLERGAN-2140630US

PATIENT
  Sex: Female

DRUGS (1)
  1. BOTOX COSMETIC [Suspect]
     Active Substance: ONABOTULINUMTOXINA
     Indication: Skin wrinkling
     Dosage: 20 UNITS, SINGLE

REACTIONS (5)
  - Suicidal ideation [Recovering/Resolving]
  - Feeling abnormal [Unknown]
  - Insomnia [Unknown]
  - Depressed mood [Unknown]
  - Mood swings [Recovering/Resolving]
